FAERS Safety Report 9645106 (Version 1)
Quarter: 2013Q4

REPORT INFORMATION
  Report Type: Report from Study
  Country: CA (occurrence: CA)
  Receive Date: 20131025
  Receipt Date: 20131025
  Transmission Date: 20140711
  Serious: Yes (Other)
  Sender: FDA-Public Use
  Company Number: CA-JNJFOC-20131012578

PATIENT
  Sex: Female
  Weight: 53.8 kg

DRUGS (9)
  1. REMICADE [Suspect]
     Indication: CROHN^S DISEASE
     Route: 042
  2. PANTOLOC [Concomitant]
     Route: 065
  3. LETROZOLE [Concomitant]
     Route: 065
  4. FOLIC ACID [Concomitant]
     Route: 065
  5. ACTONEL [Concomitant]
     Route: 065
  6. IRON [Concomitant]
     Route: 065
  7. CALCIUM [Concomitant]
     Route: 065
  8. MAGNESIUM [Concomitant]
     Route: 065
  9. EFFEXOR [Concomitant]
     Route: 065

REACTIONS (4)
  - Nephrolithiasis [Unknown]
  - Intestinal ulcer [Unknown]
  - Abdominal distension [Unknown]
  - Diarrhoea [Unknown]
